FAERS Safety Report 20184462 (Version 1)
Quarter: 2021Q4

REPORT INFORMATION
  Report Type: Spontaneous
  Country: US (occurrence: US)
  Receive Date: 20211214
  Receipt Date: 20211214
  Transmission Date: 20220303
  Serious: No
  Sender: FDA-Public Use
  Company Number: US-NOVOPROD-799615

PATIENT
  Age: 70 Year
  Sex: Female

DRUGS (3)
  1. NOVOLOG MIX 70/30 [Suspect]
     Active Substance: INSULIN ASPART
     Indication: Diabetes mellitus
     Dosage: VIAL
     Route: 065
     Dates: start: 20210317
  2. NOVOLIN 70/30 [Suspect]
     Active Substance: INSULIN HUMAN
     Indication: Diabetes mellitus
     Dosage: 105 IU
     Route: 058
  3. TRESIBA [Concomitant]
     Active Substance: INSULIN DEGLUDEC
     Indication: Diabetes mellitus
     Dosage: UNK
     Route: 065
     Dates: start: 20170101

REACTIONS (3)
  - Diarrhoea [Not Recovered/Not Resolved]
  - Product dispensing error [Unknown]
  - Wrong product administered [Not Recovered/Not Resolved]

NARRATIVE: CASE EVENT DATE: 20210317
